FAERS Safety Report 4654708-3 (Version None)
Quarter: 2005Q2

REPORT INFORMATION
  Report Type: 
  Country: None (occurrence: None)
  Receive Date: 20050506
  Receipt Date: 20050426
  Transmission Date: 20051028
  Serious: Yes (Other)
  Sender: FDA-Public Use
  Company Number: 200513754GDDC

PATIENT
  Sex: Female

DRUGS (1)
  1. KETEK [Suspect]
     Indication: INFECTION
     Dosage: DOSE: 1 DOSE
     Route: 048
     Dates: start: 20050423, end: 20050423

REACTIONS (5)
  - MIGRAINE [None]
  - MOVEMENT DISORDER [None]
  - NAUSEA [None]
  - PAIN [None]
  - VOMITING [None]
